FAERS Safety Report 7769559-0 (Version None)
Quarter: 2011Q3

REPORT INFORMATION
  Report Type: 
  Country: None (occurrence: None)
  Receive Date: 20110922
  Receipt Date: 20110107
  Transmission Date: 20111222
  Serious: No
  Sender: FDA-Public Use
  Company Number: US-ASTRAZENECA-2011SE01362

PATIENT
  Age: 74 Year
  Sex: Female
  Weight: 60.3 kg

DRUGS (2)
  1. SEROQUEL XR [Suspect]
     Indication: DEPRESSION
     Route: 048
     Dates: start: 20100701
  2. SEROQUEL XR [Suspect]
     Route: 048
     Dates: start: 20100701

REACTIONS (3)
  - ALOPECIA [None]
  - RASH MACULAR [None]
  - CYSTITIS [None]
